FAERS Safety Report 8848223 (Version 1)
Quarter: 2012Q4

REPORT INFORMATION
  Report Type: 
  Country: US (occurrence: US)
  Receive Date: 20121018
  Receipt Date: 20121018
  Transmission Date: 20130627
  Serious: Yes (Hospitalization)
  Sender: FDA-Public Use
  Company Number: US-ROCHE-1109712

PATIENT
  Sex: Male

DRUGS (7)
  1. PROTROPIN [Suspect]
     Indication: DWARFISM
     Route: 058
  2. PROTROPIN [Suspect]
     Indication: BODY HEIGHT BELOW NORMAL
     Route: 058
  3. PROTROPIN [Suspect]
     Route: 058
  4. CREON [Concomitant]
  5. TOBRAMYCIN INHALATION [Concomitant]
  6. ALBUTEROL [Concomitant]
  7. KEFLEX [Concomitant]
     Route: 065

REACTIONS (7)
  - Arthropod bite [Unknown]
  - Viral infection [Unknown]
  - Weight decreased [Unknown]
  - Musculoskeletal pain [Unknown]
  - Rhonchi [Unknown]
  - Crepitations [Unknown]
  - Clubbing [Unknown]
